FAERS Safety Report 4611417-4 (Version None)
Quarter: 2005Q1

REPORT INFORMATION
  Report Type: 
  Country: None (occurrence: None)
  Receive Date: 20050315
  Receipt Date: 20050315
  Transmission Date: 20050727
  Serious: Yes (Other)
  Sender: FDA-Public Use
  Company Number: None

PATIENT

DRUGS (2)
  1. BUPIVACAINE [Suspect]
  2. BUPIVACAINE [Suspect]

REACTIONS (1)
  - DRUG INEFFECTIVE [None]
